FAERS Safety Report 23304173 (Version 1)
Quarter: 2023Q4

REPORT INFORMATION
  Report Type: Spontaneous
  Country: US (occurrence: US)
  Receive Date: 20231218
  Receipt Date: 20231218
  Transmission Date: 20240110
  Serious: No
  Sender: FDA-Public Use
  Company Number: US-GSK-US2023171090

PATIENT
  Sex: Female

DRUGS (1)
  1. TRELEGY ELLIPTA [Suspect]
     Active Substance: FLUTICASONE FUROATE\UMECLIDINIUM BROMIDE\VILANTEROL TRIFENATATE
     Indication: Lung neoplasm malignant
     Dosage: UNK,100/62.5/25MCG INH 30
     Dates: start: 202110

REACTIONS (4)
  - Dysphonia [Unknown]
  - Speech disorder [Unknown]
  - Emphysema [Unknown]
  - Product use in unapproved indication [Unknown]
